FAERS Safety Report 11737633 (Version 7)
Quarter: 2016Q4

REPORT INFORMATION
  Report Type: Spontaneous
  Country: US (occurrence: US)
  Receive Date: 20151113
  Receipt Date: 20161114
  Transmission Date: 20170206
  Serious: Yes (Death)
  Sender: FDA-Public Use
  Company Number: US-PFIZER INC-2015330019

PATIENT
  Age: 80 Year
  Sex: Male
  Weight: 90.43 kg

DRUGS (19)
  1. SUTENT [Suspect]
     Active Substance: SUNITINIB MALATE
     Indication: RENAL CANCER STAGE IV
     Dosage: 50 MG, CYCLIC (2 WEEKS ON AND 1 WEEK OFF)
  2. ALLOPURINOL. [Concomitant]
     Active Substance: ALLOPURINOL
     Dosage: UNK
  3. CEPHALEXIN. [Concomitant]
     Active Substance: CEPHALEXIN
     Dosage: 500 MG, 2X/DAY (1 CAPSULE EVERY 12 HOURS FOR 7 DAYS)
     Route: 048
  4. SUTENT [Suspect]
     Active Substance: SUNITINIB MALATE
     Dosage: 37.5 MG, CYCLIC (2 WEEKS ON/1 WEEK OFF)
     Dates: start: 20150714
  5. SIMVASTATIN. [Concomitant]
     Active Substance: SIMVASTATIN
     Dosage: 40 MG, UNK
  6. VALACYCLOVIR [Concomitant]
     Active Substance: VALACYCLOVIR HYDROCHLORIDE
     Dosage: 1 G, UNK (TAKE 1 TABLET EVERY 12 HOURS)
     Route: 048
  7. SUTENT [Suspect]
     Active Substance: SUNITINIB MALATE
     Dosage: 37.5 MG, CYCLIC (1 WEEK ON/1 WEEK OFF)
  8. FLOMAX [Concomitant]
     Active Substance: TAMSULOSIN HYDROCHLORIDE
     Dosage: UNK
  9. AZITHROMYCIN ANHYDROUS. [Concomitant]
     Active Substance: AZITHROMYCIN ANHYDROUS
     Dosage: 250 MG, UNK
  10. CIPROFLOXACIN. [Concomitant]
     Active Substance: CIPROFLOXACIN
     Dosage: 500 MG, UNK
  11. PROMETHAZINE - CODEINE [Concomitant]
     Active Substance: CODEINE\PROMETHAZINE
     Dosage: (PROMETHAZINE 6.25 MG-CODEINE 10 MG/5 ML )
  12. CHLORAMBUCIL [Concomitant]
     Active Substance: CHLORAMBUCIL
     Dosage: UNK
  13. AMOXICILLIN. [Concomitant]
     Active Substance: AMOXICILLIN
     Dosage: 6.25 ML, (400 MG/5 ML ORAL SUSPENSION, TAKE 6.25 ML EVERY 8 HOURS)
     Route: 048
  14. DUTASTERIDE. [Concomitant]
     Active Substance: DUTASTERIDE
     Dosage: 0.5 MG, DAILY
     Route: 048
  15. METRONIDAZOLE. [Concomitant]
     Active Substance: METRONIDAZOLE
     Dosage: 500 MG, UNK
  16. HYDROCODONE BITARTRATE AND ACETAMINOPHEN [Concomitant]
     Active Substance: ACETAMINOPHEN\HYDROCODONE BITARTRATE
     Dosage: 1 DF, AS NEEDED (HYDROCODONE: 5 MG, ACETAMINOPHEN: 325 MG, TAKE 1 TABLET EVERY 6 HOURS AS NEEDED)
     Route: 048
  17. HYDROCODONE [Concomitant]
     Active Substance: HYDROCODONE
     Dosage: UNK
  18. ALPRAZOLAM. [Concomitant]
     Active Substance: ALPRAZOLAM
     Dosage: 1 MG, DAILY
     Route: 048
  19. LEUKERAN [Concomitant]
     Active Substance: CHLORAMBUCIL
     Dosage: 4 MG, DAILY (2 TABLETS)
     Route: 048

REACTIONS (12)
  - Fatigue [Unknown]
  - Death [Fatal]
  - Gait disturbance [Unknown]
  - Nasopharyngitis [Unknown]
  - Intestinal polyp [Unknown]
  - White blood cell count decreased [Unknown]
  - Anaemia [Unknown]
  - Insomnia [Unknown]
  - Diarrhoea [Unknown]
  - Dysuria [Unknown]
  - Platelet count decreased [Unknown]
  - Dizziness [Unknown]

NARRATIVE: CASE EVENT DATE: 20151019
